FAERS Safety Report 10307804 (Version 1)
Quarter: 2014Q3

REPORT INFORMATION
  Report Type: Spontaneous
  Country: FR (occurrence: FR)
  Receive Date: 20140716
  Receipt Date: 20140716
  Transmission Date: 20150326
  Serious: Yes (Other)
  Sender: FDA-Public Use
  Company Number: FR-ABBVIE-14P-056-1259620-00

PATIENT
  Age: 40 Year
  Sex: Male

DRUGS (1)
  1. VALPROATE DE SODIUM WINTHROP [Suspect]
     Active Substance: VALPROATE SODIUM
     Indication: PRODUCT USED FOR UNKNOWN INDICATION
     Route: 065
     Dates: start: 200802

REACTIONS (1)
  - Tonic clonic movements [Unknown]

NARRATIVE: CASE EVENT DATE: 20080215
